FAERS Safety Report 10367836 (Version 1)
Quarter: 2014Q3

REPORT INFORMATION
  Report Type: Spontaneous
  Country: FR (occurrence: None)
  Receive Date: 20140805
  Receipt Date: 20140805
  Transmission Date: 20150326
  Serious: Yes (Hospitalization, Other)
  Sender: FDA-Public Use
  Company Number: AUR-APL-2014-08208

PATIENT
  Age: 54 Year
  Sex: Female
  Weight: 115 kg

DRUGS (12)
  1. ALPRAZOLAM MYLAN (ALPRAZOLAM) TABLET [Concomitant]
  2. ALDACTONE /00006201/ (SPIRONOLACTONE) FILM-COATED TABLET [Concomitant]
  3. COLCHICINE OPOCALCIUM (COLCHICINE) [Concomitant]
  4. PARACETAMOL (PARACETAMOL) [Concomitant]
     Active Substance: ACETAMINOPHEN
  5. PAROXETINE [Suspect]
     Active Substance: PAROXETINE\PAROXETINE HYDROCHLORIDE
     Indication: PRODUCT USED FOR UNKNOWN INDICATION
     Route: 048
     Dates: end: 20140703
  6. ATARAX [Suspect]
     Active Substance: HYDROXYZINE\HYDROXYZINE HYDROCHLORIDE
     Indication: PRODUCT USED FOR UNKNOWN INDICATION
     Route: 048
     Dates: start: 20140611, end: 20140625
  7. LASILIX /00032601/ (FUROSEMIDE) [Concomitant]
  8. IXPRIM [Suspect]
     Active Substance: ACETAMINOPHEN\TRAMADOL HYDROCHLORIDE
     Indication: PRODUCT USED FOR UNKNOWN INDICATION
     Route: 048
     Dates: end: 20140622
  9. BISOPROLOL MYLAN (BISOPROLOL FUMARATE) [Concomitant]
  10. INEXIUM /01479302/ (ESOMEPRAZOLE MEGNESIUM) GASTRO-RESISTANT TABLET [Concomitant]
  11. ACUPAN [Suspect]
     Active Substance: NEFOPAM HYDROCHLORIDE
     Indication: PRODUCT USED FOR UNKNOWN INDICATION
     Route: 042
     Dates: start: 20140607, end: 20140610
  12. CONTRAMAL (TRAMADOL HYDROCHLORIDE) SOLUTION FOR INJECTION [Concomitant]

REACTIONS (5)
  - Arthralgia [None]
  - Accidental overdose [None]
  - General physical health deterioration [None]
  - Hallucination, visual [None]
  - Hallucination, auditory [None]

NARRATIVE: CASE EVENT DATE: 20140606
